FAERS Safety Report 8138122-4 (Version None)
Quarter: 2012Q1

REPORT INFORMATION
  Report Type: 
  Country: None (occurrence: None)
  Receive Date: 20120215
  Receipt Date: 20120215
  Transmission Date: 20120608
  Serious: Yes (Life-Threatening)
  Sender: FDA-Public Use
  Company Number: None

PATIENT
  Age: 63 Year
  Sex: Female
  Weight: 51.709 kg

DRUGS (1)
  1. RESTASIS [Suspect]
     Indication: DRY EYE
     Dosage: ONE DROP IN EACH EYE
     Route: 047
     Dates: start: 20050101, end: 20111114

REACTIONS (2)
  - SQUAMOUS CELL CARCINOMA [None]
  - NASAL CAVITY CANCER [None]
